FAERS Safety Report 4887220-7 (Version None)
Quarter: 2005Q4

REPORT INFORMATION
  Report Type: 
  Country: None (occurrence: None)
  Receive Date: 20051220
  Receipt Date: 20050511
  Transmission Date: 20060501
  Serious: Yes (Other)
  Sender: FDA-Public Use
  Company Number: HQWYE821620MAY05

PATIENT
  Age: 48 Year
  Sex: Female
  Weight: 128.03 kg

DRUGS (4)
  1. EFFEXOR XR [Suspect]
     Indication: DEPRESSION
     Dosage: 225 MG DAILY IN OCT-MAR AND 150 MG DAILY IN APR-SEP, ORAL
     Route: 048
     Dates: start: 19980101, end: 20050331
  2. LISINOPRIL [Concomitant]
  3. HYDROCHLOROTHIAZIDE [Concomitant]
  4. SYNTHROID [Concomitant]

REACTIONS (3)
  - CHILLS [None]
  - DRUG WITHDRAWAL SYNDROME [None]
  - NAUSEA [None]
